FAERS Safety Report 4617481-0 (Version None)
Quarter: 2005Q1

REPORT INFORMATION
  Report Type: 
  Country: None (occurrence: None)
  Receive Date: 20050318
  Receipt Date: 20050303
  Transmission Date: 20050727
  Serious: Yes (Hospitalization)
  Sender: FDA-Public Use
  Company Number: 2005-DE-00846GD

PATIENT
  Age: 4 Year
  Sex: Male

DRUGS (1)
  1. CLONIDINE [Suspect]
     Dosage: 3 TABLETS OF 0.1 MG 2 H AFTER
     Route: 048

REACTIONS (10)
  - ACCIDENTAL OVERDOSE [None]
  - APNOEA [None]
  - BRADYCARDIA [None]
  - COMA [None]
  - DRUG TOXICITY [None]
  - HEART RATE INCREASED [None]
  - HYPOTENSION [None]
  - RESPIRATORY DEPRESSION [None]
  - SOMNOLENCE [None]
  - UNRESPONSIVE TO VERBAL STIMULI [None]
